FAERS Safety Report 16898417 (Version 1)
Quarter: 2019Q4

REPORT INFORMATION
  Report Type: Spontaneous
  Country: NL (occurrence: NL)
  Receive Date: 20191009
  Receipt Date: 20191009
  Transmission Date: 20200122
  Serious: Yes (Hospitalization)
  Sender: FDA-Public Use
  Company Number: NL-UNICHEM PHARMACEUTICALS (USA) INC-UCM201909-000526

PATIENT
  Age: 2 Year
  Sex: Male

DRUGS (4)
  1. HYDROCHLOROTHIAZIDE. [Suspect]
     Active Substance: HYDROCHLOROTHIAZIDE
     Indication: HYPERINSULINISM SYNDROME
     Route: 048
  2. HYDROCHLOROTHIAZIDE. [Suspect]
     Active Substance: HYDROCHLOROTHIAZIDE
     Route: 048
  3. DIAZOXIDE [Suspect]
     Active Substance: DIAZOXIDE
     Indication: HYPERINSULINISM
     Route: 048
  4. DIAZOXIDE [Suspect]
     Active Substance: DIAZOXIDE
     Route: 048

REACTIONS (6)
  - Haematemesis [Unknown]
  - Thrombocytopenia [Recovered/Resolved]
  - Petechiae [Unknown]
  - Epistaxis [Unknown]
  - Rectal haemorrhage [Unknown]
  - Drug interaction [Unknown]
